FAERS Safety Report 24897271 (Version 4)
Quarter: 2025Q3

REPORT INFORMATION
  Report Type: Spontaneous
  Country: US (occurrence: US)
  Receive Date: 20250129
  Receipt Date: 20250710
  Transmission Date: 20251021
  Serious: Yes (Hospitalization)
  Sender: BIOGEN
  Company Number: US-BIOGEN-2024BI01295169

PATIENT
  Sex: Female

DRUGS (4)
  1. TYSABRI [Suspect]
     Active Substance: NATALIZUMAB
     Indication: Multiple sclerosis
     Route: 050
     Dates: start: 20100609, end: 20110616
  2. TYSABRI [Suspect]
     Active Substance: NATALIZUMAB
     Route: 050
     Dates: start: 20120607, end: 20220720
  3. TYSABRI [Suspect]
     Active Substance: NATALIZUMAB
     Route: 050
     Dates: start: 20230313, end: 20241004
  4. TYSABRI [Suspect]
     Active Substance: NATALIZUMAB
     Route: 050
     Dates: start: 20250701

REACTIONS (7)
  - Wound cellulitis [Recovered/Resolved]
  - Skin laceration [Not Recovered/Not Resolved]
  - Hypertonic bladder [Unknown]
  - Hot flush [Unknown]
  - Dry mouth [Unknown]
  - Road traffic accident [Recovered/Resolved]
  - Limb injury [Unknown]
